FAERS Safety Report 23513178 (Version 1)
Quarter: 2024Q1

REPORT INFORMATION
  Report Type: Spontaneous
  Country: US (occurrence: US)
  Receive Date: 20240212
  Receipt Date: 20240212
  Transmission Date: 20240409
  Serious: No
  Sender: FDA-Public Use
  Company Number: US-MARIUS PHARMACEUTICALS-2023US004106

PATIENT

DRUGS (1)
  1. KYZATREX [Suspect]
     Active Substance: TESTOSTERONE UNDECANOATE
     Indication: Product used for unknown indication
     Dosage: 400 MG (200 MG TWICE DAILY), BID
     Route: 048

REACTIONS (1)
  - Therapeutic product effect incomplete [Unknown]
